FAERS Safety Report 24589285 (Version 4)
Quarter: 2024Q4

REPORT INFORMATION
  Report Type: Report from Study
  Country: US (occurrence: US)
  Receive Date: 20241107
  Receipt Date: 20241219
  Transmission Date: 20250115
  Serious: Yes (Hospitalization)
  Sender: PFIZER
  Company Number: IN-PFIZER INC-202400295705

PATIENT
  Age: 75 Year
  Sex: Female
  Weight: 57.4 kg

DRUGS (20)
  1. METHOTREXATE SODIUM [Suspect]
     Active Substance: METHOTREXATE SODIUM
     Indication: Central nervous system lymphoma
     Dosage: 8 G/M2 (WITH SOC HYDRATION AND LEUCOVORIN) ON DAY 1 AND 15 OF 28 DAY
     Route: 042
     Dates: start: 20231027, end: 20231224
  2. RITUXIMAB [Suspect]
     Active Substance: RITUXIMAB
     Indication: Central nervous system lymphoma
     Dosage: 375 MG/M2 WEEKLY FOR SIX DAYS-C1D3, C1D10, C1D17, C1D24, C2D3, C2D10
     Route: 042
     Dates: start: 20231101, end: 20231224
  3. TIRABRUTINIB [Suspect]
     Active Substance: TIRABRUTINIB
     Indication: Central nervous system lymphoma
     Dosage: 480 MG, DAILY (CYCLE 1, 28 CONSECUTIVE DAYS)
     Route: 048
     Dates: start: 20231027, end: 20231123
  4. TIRABRUTINIB [Suspect]
     Active Substance: TIRABRUTINIB
     Dosage: 480 MG, DAILY (CYCLE 2)
     Route: 048
     Dates: start: 20231124, end: 20231225
  5. TEMOZOLOMIDE [Suspect]
     Active Substance: TEMOZOLOMIDE
     Indication: Central nervous system lymphoma
     Dosage: 150 MG/ M2 DAILY, ON DAY 1 AND 15 OF EACH 28 CYCLE
     Route: 048
     Dates: start: 20231025, end: 202312
  6. TEMOZOLOMIDE [Suspect]
     Active Substance: TEMOZOLOMIDE
     Dosage: 150 MG/ M2 DAILY, ON DAY 1 AND 15 OF EACH 28 CYCLE
     Route: 048
     Dates: start: 202312, end: 20240109
  7. KEPPRA [Concomitant]
     Active Substance: LEVETIRACETAM
     Indication: Seizure
     Dosage: 1500 MG, 2X/DAY
     Route: 042
     Dates: start: 20231221, end: 20231227
  8. LACOSAMIDE [Concomitant]
     Active Substance: LACOSAMIDE
     Indication: Seizure
     Dosage: 200 MG
     Dates: start: 20231212
  9. LACOSAMIDE [Concomitant]
     Active Substance: LACOSAMIDE
     Dosage: 100 MG, 1X/DAY
     Route: 042
     Dates: start: 20231221, end: 20231227
  10. ALPROATE [Concomitant]
     Indication: Seizure
     Dosage: 250, 2X/DAY
     Dates: start: 20240104
  11. SIMETHICONE (DIMETHICONE) [Concomitant]
     Active Substance: DIMETHICONE
     Dosage: 80 MG, AS NEEDED
     Route: 048
     Dates: start: 20231230, end: 20240103
  12. ZYPREXA [Concomitant]
     Active Substance: OLANZAPINE
     Dosage: 2.5 MG
  13. ERGOCALCIFEROL [Concomitant]
     Active Substance: ERGOCALCIFEROL
  14. LOPERAMIDE HYDROCHLORIDE [Concomitant]
     Active Substance: LOPERAMIDE HYDROCHLORIDE
  15. LEUCOVORIN [Concomitant]
     Active Substance: LEUCOVORIN\LEUCOVORIN CALCIUM
     Dosage: 156 MG,EVERY 6 HOURS
     Route: 042
     Dates: start: 20231221, end: 20231227
  16. LACTATED RINGERS SOLUTION [Concomitant]
     Active Substance: CALCIUM CHLORIDE\POTASSIUM CHLORIDE\SODIUM CHLORIDE\SODIUM LACTATE
     Indication: Hypotension
     Dosage: 1750 ML, AS NEEDED
     Route: 042
     Dates: start: 20231027
  17. VANCOMYCIN [Concomitant]
     Active Substance: VANCOMYCIN
     Indication: Pyrexia
     Dosage: 1.25 G, VERY 12 HOURS AT A RATE OF 200 ML/ HOUR OVER 60 MINUTES
     Route: 042
     Dates: start: 20231027
  18. ZOSYN [Concomitant]
     Active Substance: PIPERACILLIN SODIUM\TAZOBACTAM SODIUM
     Indication: Pyrexia
     Dosage: 4.5 G, SINGLE
     Route: 042
     Dates: start: 20231027
  19. MEROPENEM [Concomitant]
     Active Substance: MEROPENEM
     Indication: Pyrexia
     Dosage: 1 G, SINGLE
     Route: 042
     Dates: start: 20231027
  20. CEFTRIAXONE [Concomitant]
     Active Substance: CEFTRIAXONE
     Indication: Pyrexia
     Dosage: 2 G, SINGLE
     Route: 042
     Dates: start: 20231027

REACTIONS (3)
  - Seizure [Recovered/Resolved]
  - Disease recurrence [Recovered/Resolved]
  - Fall [Recovered/Resolved]

NARRATIVE: CASE EVENT DATE: 20231224
